FAERS Safety Report 6368667-9 (Version None)
Quarter: 2009Q3

REPORT INFORMATION
  Report Type: 
  Country: None (occurrence: None)
  Receive Date: 20090916
  Receipt Date: 20090903
  Transmission Date: 20100115
  Serious: Yes (Hospitalization, Other)
  Sender: FDA-Public Use
  Company Number: 2009AP003436

PATIENT
  Age: 42 Year
  Sex: Female

DRUGS (12)
  1. RISPERIDONE [Suspect]
  2. VALPROIC ACID SYRUP [Suspect]
     Dosage: 500 MG; QD;
  3. ZIPRASIDONE HCL [Suspect]
     Indication: AGITATION
     Dosage: 40 MG; QD;
  4. ZIPRASIDONE HCL [Suspect]
     Indication: PSYCHOTIC DISORDER
     Dosage: 40 MG; QD;
  5. QUETIAPINE FUMARATE [Suspect]
     Indication: AGITATION
     Dosage: 25 MG; HS;
  6. QUETIAPINE FUMARATE [Suspect]
     Indication: PSYCHOTIC DISORDER
     Dosage: 25 MG; HS;
  7. OLANZAPINE [Suspect]
  8. TOPIRAMATE [Suspect]
     Dosage: 50 MG; BID;
  9. DULOXETINE HYDROCHLORIDE [Suspect]
     Dosage: 30 MG; QD;
  10. LORAZEPAM [Suspect]
     Indication: AGITATION
     Dosage: 0.5 MG; BID; PO
     Route: 048
  11. LORAZEPAM [Suspect]
     Indication: PSYCHOTIC DISORDER
     Dosage: 0.5 MG; BID; PO
     Route: 048
  12. FLUPHENAZINE [Concomitant]

REACTIONS (14)
  - AFFECTIVE DISORDER [None]
  - AGGRESSION [None]
  - AGITATION [None]
  - ANXIETY [None]
  - CONDITION AGGRAVATED [None]
  - CONFUSIONAL STATE [None]
  - DEATH OF RELATIVE [None]
  - DELUSION [None]
  - EMOTIONAL DISTRESS [None]
  - HALLUCINATION, AUDITORY [None]
  - NEUROLEPTIC MALIGNANT SYNDROME [None]
  - PARANOIA [None]
  - PSYCHOTIC DISORDER [None]
  - REFUSAL OF TREATMENT BY PATIENT [None]
